FAERS Safety Report 9545009 (Version 1)
Quarter: 2013Q3

REPORT INFORMATION
  Report Type: Spontaneous
  Country: US (occurrence: US)
  Receive Date: 20130923
  Receipt Date: 20130923
  Transmission Date: 20140515
  Serious: No
  Sender: FDA-Public Use
  Company Number: US-GLAXOSMITHKLINE-A1003145A

PATIENT
  Age: 30 Year
  Sex: Female

DRUGS (2)
  1. ABREVA [Suspect]
     Indication: ORAL HERPES
  2. HERPECIN-L [Concomitant]

REACTIONS (1)
  - Application site erythema [Unknown]
